FAERS Safety Report 24433096 (Version 1)
Quarter: 2024Q4

REPORT INFORMATION
  Report Type: Report from Study
  Country: DE (occurrence: DE)
  Receive Date: 20241014
  Receipt Date: 20241014
  Transmission Date: 20250115
  Serious: Yes (Hospitalization, Other)
  Sender: SANDOZ
  Company Number: DE-SANDOZ-SDZ2023DE041595

PATIENT
  Sex: Female

DRUGS (4)
  1. ETANERCEPT [Suspect]
     Active Substance: ETANERCEPT
     Indication: Product used for unknown indication
     Dosage: 50 MG EVERY 7 DAYS
     Route: 065
     Dates: end: 20230619
  2. ETANERCEPT [Suspect]
     Active Substance: ETANERCEPT
     Dosage: UNK
     Route: 065
     Dates: start: 202208, end: 202306
  3. HULIO [Suspect]
     Active Substance: ADALIMUMAB-FKJP
     Indication: Product used for unknown indication
     Dosage: 40 MG
     Route: 065
     Dates: start: 202203, end: 202208
  4. METHOTREXATE [Suspect]
     Active Substance: METHOTREXATE
     Indication: Product used for unknown indication
     Dosage: 7.5MG/EVERY WEEK
     Route: 065
     Dates: end: 202306

REACTIONS (2)
  - Cholangiocarcinoma [Not Recovered/Not Resolved]
  - Hepatic cyst [Unknown]

NARRATIVE: CASE EVENT DATE: 20230608
